FAERS Safety Report 11230804 (Version 1)
Quarter: 2015Q3

REPORT INFORMATION
  Report Type: Spontaneous
  Country: AE (occurrence: AE)
  Receive Date: 20150701
  Receipt Date: 20150701
  Transmission Date: 20151125
  Serious: Yes (Other)
  Sender: FDA-Public Use
  Company Number: AE-JNJFOC-20150619909

PATIENT
  Age: 35 Year
  Sex: Female

DRUGS (3)
  1. AZATHIOPRINE. [Concomitant]
     Active Substance: AZATHIOPRINE
     Indication: COLITIS ULCERATIVE
     Route: 065
     Dates: end: 2015
  2. REMICADE [Suspect]
     Active Substance: INFLIXIMAB
     Indication: COLITIS ULCERATIVE
     Dosage: 0, 2, 6 AND WAS ON MAINTAINANCE DOSE
     Route: 042
     Dates: start: 201410
  3. REMICADE [Suspect]
     Active Substance: INFLIXIMAB
     Indication: COLITIS ULCERATIVE
     Route: 042
     Dates: start: 201504, end: 201504

REACTIONS (5)
  - Breast abscess [Recovered/Resolved]
  - Abdominal wall abscess [Recovered/Resolved]
  - Abscess limb [Unknown]
  - Colitis ulcerative [Unknown]
  - Erythema nodosum [Not Recovered/Not Resolved]

NARRATIVE: CASE EVENT DATE: 2015
